FAERS Safety Report 8265594-7 (Version None)
Quarter: 2012Q2

REPORT INFORMATION
  Report Type: 
  Country: None (occurrence: None)
  Receive Date: 20120403
  Receipt Date: 20120322
  Transmission Date: 20120825
  Serious: Yes (Other)
  Sender: FDA-Public Use
  Company Number: DSU-2012-02329

PATIENT
  Sex: Female

DRUGS (1)
  1. OLMESARTAN MEDOXOMIL [Suspect]
     Indication: HYPERTENSION
     Dosage: ORAL
     Route: 048
     Dates: start: 20111115, end: 20120212

REACTIONS (5)
  - WEIGHT INCREASED [None]
  - SUICIDAL IDEATION [None]
  - AMNESIA [None]
  - NARCOLEPSY [None]
  - DEPRESSION [None]
